FAERS Safety Report 9299246 (Version 1)
Quarter: 2013Q2

REPORT INFORMATION
  Report Type: Spontaneous
  Country: TR (occurrence: TR)
  Receive Date: 20130520
  Receipt Date: 20130520
  Transmission Date: 20140414
  Serious: Yes (Hospitalization)
  Sender: FDA-Public Use
  Company Number: TR-ALEXION PHARMACEUTICALS INC.-A201301108

PATIENT
  Age: 26 Year
  Sex: Female

DRUGS (2)
  1. SOLIRIS 300MG [Suspect]
     Indication: TRANSPLANT REJECTION
     Dosage: 900 MG, QW FOR 4 WEEKS
     Route: 042
  2. IMMUNOGLOBULIN [Concomitant]
     Dosage: 500 MG/KG, UNK
     Route: 042

REACTIONS (1)
  - Pancreatitis acute [Recovered/Resolved]
